FAERS Safety Report 5827387-7 (Version None)
Quarter: 2008Q3

REPORT INFORMATION
  Report Type: 
  Country: None (occurrence: None)
  Receive Date: 20080730
  Receipt Date: 20080728
  Transmission Date: 20090109
  Serious: Yes (Other)
  Sender: FDA-Public Use
  Company Number: FR-BRISTOL-MYERS SQUIBB COMPANY-14280606

PATIENT
  Age: 85 Year
  Sex: Male

DRUGS (7)
  1. IRBESARTAN [Suspect]
     Route: 048
  2. FUROSEMIDE [Suspect]
     Indication: CARDIAC FAILURE
     Route: 048
     Dates: start: 20071101, end: 20080408
  3. PRAVASTATIN [Concomitant]
     Route: 048
  4. CARVEDILOL [Concomitant]
     Route: 048
  5. AMLOR [Concomitant]
     Route: 048
  6. KARDEGIC [Concomitant]
     Route: 048
  7. PARIET [Concomitant]
     Route: 048

REACTIONS (3)
  - OEDEMA [None]
  - THERAPEUTIC RESPONSE DECREASED [None]
  - WEIGHT INCREASED [None]
